FAERS Safety Report 9990199 (Version 1)
Quarter: 2014Q1

REPORT INFORMATION
  Report Type: Report from Study
  Country: US (occurrence: US)
  Receive Date: 20140310
  Receipt Date: 20140310
  Transmission Date: 20141002
  Serious: No
  Sender: FDA-Public Use
  Company Number: US-ABBVIE-13P-163-1135342-00

PATIENT
  Age: 41 Year
  Sex: Female

DRUGS (4)
  1. HUMIRA [Suspect]
     Indication: CROHN^S DISEASE
     Dates: start: 20130705
  2. TAMOXIFEN [Concomitant]
     Indication: BREAST CANCER
     Dosage: 20 MG EVERY DAY
  3. EFFEXOR [Concomitant]
     Indication: PROPHYLAXIS
     Dosage: 150 EVERY DAY
  4. APRISO [Concomitant]
     Indication: CROHN^S DISEASE

REACTIONS (2)
  - Joint stiffness [Not Recovered/Not Resolved]
  - Arthralgia [Not Recovered/Not Resolved]
